FAERS Safety Report 8070200-0 (Version None)
Quarter: 2012Q1

REPORT INFORMATION
  Report Type: 
  Country: None (occurrence: None)
  Receive Date: 20120125
  Receipt Date: 20120120
  Transmission Date: 20120608
  Serious: Yes (Hospitalization)
  Sender: FDA-Public Use
  Company Number: US-ACTELION-A-NJ2012-59233

PATIENT

DRUGS (4)
  1. REVATIO [Concomitant]
  2. COUMADIN [Concomitant]
  3. OXYGEN [Concomitant]
  4. VENTAVIS [Suspect]
     Indication: PULMONARY ARTERIAL HYPERTENSION
     Dosage: UNK
     Route: 055
     Dates: start: 20100607

REACTIONS (1)
  - FOOT OPERATION [None]
